FAERS Safety Report 5938356-0 (Version None)
Quarter: 2008Q4

REPORT INFORMATION
  Report Type: 
  Country: None (occurrence: None)
  Receive Date: 20081103
  Receipt Date: 20081028
  Transmission Date: 20090506
  Serious: Yes (Hospitalization)
  Sender: FDA-Public Use
  Company Number: US-BRISTOL-MYERS SQUIBB COMPANY-14265136

PATIENT
  Age: 50 Year
  Sex: Female

DRUGS (6)
  1. ERBITUX [Suspect]
     Indication: COLON CANCER
     Dosage: STARTED 2 WK BFORE2ND CYC.5CYC;18AUG08,ONCE WK/6CYC;15SEP08,7CYC;22SEP08,8CYC;13OCT08;CYC9;20OCT08
     Route: 042
     Dates: start: 20080701, end: 20080701
  2. IRINOTECAN HYDROCHLORIDE [Suspect]
     Indication: COLON CANCER
     Dosage: STARTED 2WKS BEFORE 2ND CYC. 18AUG08;22SEP2008;20OCT2008
     Dates: start: 20080701, end: 20080701
  3. NEULASTA [Suspect]
     Dosage: DAY 2- 22SEP08
     Dates: start: 20080730, end: 20080730
  4. TEGRETOL [Suspect]
     Indication: CONVULSION
     Dosage: INITIALLY 200MG BID, THEN INCREASED 200MG MORN AND 400MG EVE
  5. LAMICTAL [Concomitant]
  6. COUMADIN [Concomitant]
     Dosage: 6AUG08-CHANGED TO 5,5 AND 7.5
     Route: 048

REACTIONS (22)
  - ANAEMIA [None]
  - ANTIPSYCHOTIC DRUG LEVEL INCREASED [None]
  - CARBUNCLE [None]
  - CELLULITIS [None]
  - DERMATITIS ACNEIFORM [None]
  - DRUG INTERACTION [None]
  - FATIGUE [None]
  - GAIT DISTURBANCE [None]
  - HYPOKALAEMIA [None]
  - HYPOMAGNESAEMIA [None]
  - HYPOTENSION [None]
  - INTERNATIONAL NORMALISED RATIO INCREASED [None]
  - LEUKOCYTOSIS [None]
  - NAUSEA [None]
  - ORAL HERPES [None]
  - PERIORBITAL ABSCESS [None]
  - PERIORBITAL CELLULITIS [None]
  - RASH [None]
  - SKIN TOXICITY [None]
  - STAPHYLOCOCCAL ABSCESS [None]
  - VERTIGO [None]
  - VISION BLURRED [None]
